FAERS Safety Report 21531904 (Version 1)
Quarter: 2022Q4

REPORT INFORMATION
  Report Type: Spontaneous
  Country: CA (occurrence: CA)
  Receive Date: 20221101
  Receipt Date: 20221101
  Transmission Date: 20230112
  Serious: Yes (Other)
  Sender: FDA-Public Use
  Company Number: CA-BAXTER-2022BAX022996

PATIENT
  Age: 49 Year
  Sex: Female
  Weight: 56 kg

DRUGS (6)
  1. CEFTRIAXONE [Suspect]
     Active Substance: CEFTRIAXONE
     Indication: Appendicectomy
     Dosage: 2 GRAM, ONE EVERY ONE DAYS (DOSAGE FORM: POWDER FOR SOLUTION INTRAMUSCULAR)
     Route: 042
  2. CEFTRIAXONE [Suspect]
     Active Substance: CEFTRIAXONE
     Indication: Antibiotic prophylaxis
  3. CEFAZOLIN [Suspect]
     Active Substance: CEFAZOLIN
     Indication: Appendicectomy
     Dosage: 1 GRAM, ONCE (DOSAGE FORM: POWDER FOR SOLUTION INTRAMUSCULAR)
     Route: 042
  4. CEFAZOLIN [Suspect]
     Active Substance: CEFAZOLIN
     Indication: Antibiotic prophylaxis
  5. CIPROFLOXACIN [Suspect]
     Active Substance: CIPROFLOXACIN
     Indication: Appendicectomy
     Dosage: 500 MILLIGRAM, TWO EVERY ONE DAY
     Route: 048
  6. CIPROFLOXACIN [Suspect]
     Active Substance: CIPROFLOXACIN
     Indication: Antibiotic prophylaxis

REACTIONS (2)
  - Clostridium test positive [Unknown]
  - Diarrhoea [Unknown]
